FAERS Safety Report 9363514 (Version 2)
Quarter: 2013Q3

REPORT INFORMATION
  Report Type: Report from Study
  Country: CA (occurrence: CA)
  Receive Date: 20130624
  Receipt Date: 20130717
  Transmission Date: 20140515
  Serious: Yes (Other)
  Sender: FDA-Public Use
  Company Number: CA-JNJFOC-20130609964

PATIENT
  Age: 57 Year
  Sex: Male
  Weight: 102.06 kg

DRUGS (2)
  1. REMICADE [Suspect]
     Indication: ANKYLOSING SPONDYLITIS
     Route: 042
     Dates: start: 20130506, end: 20130703
  2. REMICADE [Suspect]
     Indication: ANKYLOSING SPONDYLITIS
     Route: 042
     Dates: start: 20120827

REACTIONS (8)
  - Cerebrovascular accident [Unknown]
  - Vertigo [Unknown]
  - Drug ineffective [Unknown]
  - Gastrooesophageal reflux disease [Unknown]
  - Increased tendency to bruise [Not Recovered/Not Resolved]
  - Insomnia [Unknown]
  - Abdominal pain upper [Unknown]
  - Pruritus [Unknown]
